FAERS Safety Report 26129359 (Version 2)
Quarter: 2025Q4

REPORT INFORMATION
  Report Type: Spontaneous
  Country: US (occurrence: US)
  Receive Date: 20251208
  Receipt Date: 20251217
  Transmission Date: 20260118
  Serious: Yes (Other)
  Sender: ACCORD
  Company Number: US-Accord-516531

PATIENT
  Age: 29 Year
  Sex: Female

DRUGS (5)
  1. SPIRONOLACTONE [Suspect]
     Active Substance: SPIRONOLACTONE
     Indication: Acne
     Route: 048
  2. LAMOTRIGINE [Concomitant]
     Active Substance: LAMOTRIGINE
     Indication: Simple partial seizures
  3. FOLIC ACID [Concomitant]
     Active Substance: FOLIC ACID
  4. TRETINOIN [Concomitant]
     Active Substance: TRETINOIN
     Route: 061
  5. SPIRONOLACTONE [Suspect]
     Active Substance: SPIRONOLACTONE
     Indication: Acne
     Dosage: THE DOSE WAS INCREASED TO 100 MG DAILY AFTER 1 MONTH
     Route: 048

REACTIONS (2)
  - Simple partial seizures [Recovering/Resolving]
  - Off label use [Unknown]
